FAERS Safety Report 24177176 (Version 1)
Quarter: 2024Q3

REPORT INFORMATION
  Report Type: Spontaneous
  Country: US (occurrence: US)
  Receive Date: 20240806
  Receipt Date: 20240806
  Transmission Date: 20241016
  Serious: Yes (Hospitalization)
  Sender: AMNEAL
  Company Number: US-AMNEAL-2024-AMRX-01871

PATIENT
  Sex: Male
  Weight: 48 kg

DRUGS (2)
  1. BACLOFEN [Suspect]
     Active Substance: BACLOFEN
     Indication: Product used for unknown indication
     Dosage: 805.06661 MCG/DAY
     Route: 037
  2. BACLOFEN [Suspect]
     Active Substance: BACLOFEN
     Dosage: UNK
     Route: 037
     Dates: start: 20240501

REACTIONS (2)
  - Mental status changes [Recovered/Resolved]
  - Somnolence [Recovered/Resolved]
